FAERS Safety Report 5403338-4 (Version None)
Quarter: 2007Q3

REPORT INFORMATION
  Report Type: 
  Country: None (occurrence: None)
  Receive Date: 20070801
  Receipt Date: 20070726
  Transmission Date: 20080115
  Serious: Yes (Hospitalization, Disabling, Other)
  Sender: FDA-Public Use
  Company Number: GB-MERCK-0707GBR00116

PATIENT
  Age: 70 Year
  Sex: Female
  Weight: 60 kg

DRUGS (4)
  1. ZETIA [Suspect]
     Indication: TYPE IIA HYPERLIPIDAEMIA
     Route: 048
     Dates: start: 20040601, end: 20051201
  2. ATORVASTATIN CALCIUM [Suspect]
     Indication: TYPE IIA HYPERLIPIDAEMIA
     Route: 048
     Dates: start: 20060201, end: 20060301
  3. ATORVASTATIN CALCIUM [Suspect]
     Route: 048
     Dates: start: 19991101, end: 20051201
  4. AZITHROMYCIN [Concomitant]
     Route: 065
     Dates: end: 20051201

REACTIONS (4)
  - ABDOMINAL PAIN UPPER [None]
  - AUTOIMMUNE HEPATITIS [None]
  - BLOOD IMMUNOGLOBULIN G INCREASED [None]
  - LIVER FUNCTION TEST ABNORMAL [None]
